FAERS Safety Report 13927821 (Version 1)
Quarter: 2017Q3

REPORT INFORMATION
  Report Type: Spontaneous
  Country: US (occurrence: US)
  Receive Date: 20170831
  Receipt Date: 20170831
  Transmission Date: 20171127
  Serious: Yes (Hospitalization, Other)
  Sender: FDA-Public Use
  Company Number: US-BAXTER-2017BAX030826

PATIENT
  Sex: Female
  Weight: 69.92 kg

DRUGS (27)
  1. CYCLOPHOSPHAMIDE FOR INJECTION, USP [Suspect]
     Active Substance: CYCLOPHOSPHAMIDE
     Indication: INFLAMMATORY CARCINOMA OF BREAST STAGE III
     Dosage: NEO-ADJUVANT CHEMOTHERAPY
     Route: 065
     Dates: start: 20111212
  2. ADRIAMYCIN [Suspect]
     Active Substance: DOXORUBICIN HYDROCHLORIDE
     Indication: METASTASES TO LYMPH NODES
     Dosage: NEO-ADJUVANT CHEMOTHERAPY
     Route: 065
     Dates: start: 20111212
  3. TAXOL [Suspect]
     Active Substance: PACLITAXEL
     Indication: INVASIVE BREAST CARCINOMA
  4. ANASTROZOLE. [Suspect]
     Active Substance: ANASTROZOLE
     Indication: METASTASES TO LYMPH NODES
     Dosage: TABLET
     Route: 048
     Dates: start: 20120803
  5. MECLIZINE HCL [Suspect]
     Active Substance: MECLIZINE HYDROCHLORIDE
     Indication: PRODUCT USED FOR UNKNOWN INDICATION
     Dosage: TABLET, HALF TO ONE TABLET AS NEEDED
     Route: 048
     Dates: start: 20120131
  6. ASPIRIN EC [Suspect]
     Active Substance: ASPIRIN
     Indication: PRODUCT USED FOR UNKNOWN INDICATION
     Dosage: DELAYED RELEASE TABLET
     Route: 048
     Dates: start: 20151103
  7. TAXOL [Suspect]
     Active Substance: PACLITAXEL
     Indication: METASTASES TO LYMPH NODES
     Route: 065
  8. HERCEPTIN [Suspect]
     Active Substance: TRASTUZUMAB
     Indication: METASTASES TO LYMPH NODES
     Route: 065
     Dates: start: 20120207
  9. DULOXETINE HCL [Suspect]
     Active Substance: DULOXETINE HYDROCHLORIDE
     Indication: PRODUCT USED FOR UNKNOWN INDICATION
     Dosage: DELAYED RELEASE PARTICLES
     Route: 048
     Dates: start: 20150903
  10. CYCLOPHOSPHAMIDE FOR INJECTION, USP [Suspect]
     Active Substance: CYCLOPHOSPHAMIDE
     Indication: METASTASES TO LYMPH NODES
  11. TAXOL [Suspect]
     Active Substance: PACLITAXEL
     Indication: INFLAMMATORY CARCINOMA OF BREAST STAGE III
  12. IBRANCE [Suspect]
     Active Substance: PALBOCICLIB
     Indication: METASTASES TO LYMPH NODES
     Dosage: ON DAYS 1 - 21 EVERY 28 DAYS
     Route: 048
     Dates: start: 20170713
  13. ADRIAMYCIN [Suspect]
     Active Substance: DOXORUBICIN HYDROCHLORIDE
     Indication: INVASIVE BREAST CARCINOMA
  14. ADRIAMYCIN [Suspect]
     Active Substance: DOXORUBICIN HYDROCHLORIDE
     Indication: INFLAMMATORY CARCINOMA OF BREAST STAGE III
  15. HERCEPTIN [Suspect]
     Active Substance: TRASTUZUMAB
     Indication: INFLAMMATORY CARCINOMA OF BREAST STAGE III
  16. EXTERNAL GEL TRETINOIN MICROSPHERE [Suspect]
     Active Substance: TRETINOIN
     Indication: PRODUCT USED FOR UNKNOWN INDICATION
     Dosage: EXTERNAL GEL
     Route: 065
     Dates: start: 20150312
  17. FENTANYL. [Suspect]
     Active Substance: FENTANYL
     Indication: PRODUCT USED FOR UNKNOWN INDICATION
     Dosage: TRANSDERMAL PATCH,12 MCG/HOUR, 1 PATCH EVERY 72 HOURS
     Route: 062
     Dates: start: 20170712
  18. POTASSIUM CHLORIDE CRYSTAL [Suspect]
     Active Substance: POTASSIUM CHLORIDE
     Indication: PRODUCT USED FOR UNKNOWN INDICATION
     Dosage: EXTENDED RELEASE TABLETS
     Route: 048
     Dates: start: 20170712
  19. BYSTOLIC [Suspect]
     Active Substance: NEBIVOLOL HYDROCHLORIDE
     Indication: PRODUCT USED FOR UNKNOWN INDICATION
     Dosage: TABLET
     Route: 048
     Dates: start: 20170712
  20. IBRANCE [Suspect]
     Active Substance: PALBOCICLIB
     Indication: INFLAMMATORY CARCINOMA OF BREAST STAGE III
  21. IBRANCE [Suspect]
     Active Substance: PALBOCICLIB
     Indication: INVASIVE BREAST CARCINOMA
  22. IBUPROFEN. [Suspect]
     Active Substance: IBUPROFEN
     Indication: PRODUCT USED FOR UNKNOWN INDICATION
     Dosage: TAKE 2 TABLETS AS REQUIRED
     Route: 048
     Dates: start: 20170411
  23. CYCLOPHOSPHAMIDE FOR INJECTION, USP [Suspect]
     Active Substance: CYCLOPHOSPHAMIDE
     Indication: INVASIVE BREAST CARCINOMA
  24. HERCEPTIN [Suspect]
     Active Substance: TRASTUZUMAB
     Indication: INVASIVE BREAST CARCINOMA
  25. FIBER [Suspect]
     Active Substance: PSYLLIUM HUSK
     Indication: PRODUCT USED FOR UNKNOWN INDICATION
     Dosage: TABLET
     Route: 048
     Dates: start: 20170418
  26. ANASTROZOLE. [Suspect]
     Active Substance: ANASTROZOLE
     Indication: INFLAMMATORY CARCINOMA OF BREAST STAGE III
  27. ANASTROZOLE. [Suspect]
     Active Substance: ANASTROZOLE
     Indication: INVASIVE BREAST CARCINOMA

REACTIONS (15)
  - Oral herpes [Unknown]
  - Recurrent cancer [Recovering/Resolving]
  - Malignant pleural effusion [Recovering/Resolving]
  - Paratracheal lymphadenopathy [Recovering/Resolving]
  - Discomfort [Recovering/Resolving]
  - Depression [Recovering/Resolving]
  - Migraine [Unknown]
  - Non-small cell lung cancer [Recovering/Resolving]
  - Haemorrhoids [Unknown]
  - Nausea [Recovering/Resolving]
  - Cardiac tamponade [Recovering/Resolving]
  - Generalised anxiety disorder [Recovering/Resolving]
  - Dysphonia [Recovering/Resolving]
  - Varicella [Unknown]
  - Pericardial effusion malignant [Recovering/Resolving]
